FAERS Safety Report 5015257-6 (Version None)
Quarter: 2006Q2

REPORT INFORMATION
  Report Type: 
  Country: None (occurrence: None)
  Receive Date: 20060530
  Receipt Date: 20060517
  Transmission Date: 20061013
  Serious: Yes (Other)
  Sender: FDA-Public Use
  Company Number: 2006066110

PATIENT
  Age: 57 Year
  Sex: Male
  Weight: 81.6475 kg

DRUGS (4)
  1. TIKOSYN [Suspect]
     Indication: ATRIAL FIBRILLATION
     Dosage: 1000 MCG (500 MCG, BID), ORAL
     Route: 048
     Dates: start: 20060508
  2. ALCOHOL (ETHANOL) [Suspect]
     Indication: ILL-DEFINED DISORDER
     Dosage: 2 OUNCES, ORAL
     Route: 048
     Dates: start: 20060516, end: 20060516
  3. DILTIAZEM [Concomitant]
  4. COUMADIN [Concomitant]

REACTIONS (4)
  - ALCOHOL USE [None]
  - ATRIAL FIBRILLATION [None]
  - DRUG DOSE OMISSION [None]
  - HEART RATE DECREASED [None]
